FAERS Safety Report 14684717 (Version 4)
Quarter: 2018Q2

REPORT INFORMATION
  Report Type: Spontaneous
  Country: US (occurrence: US)
  Receive Date: 20180327
  Receipt Date: 20180621
  Transmission Date: 20180711
  Serious: Yes (Hospitalization, Other)
  Sender: FDA-Public Use
  Company Number: US-OTSUKA-2018_004958

PATIENT
  Age: 27 Year
  Sex: Female

DRUGS (7)
  1. ATIVAN [Suspect]
     Active Substance: LORAZEPAM
     Indication: PRODUCT USED FOR UNKNOWN INDICATION
     Dosage: 2.5 MG, UNK
     Route: 065
  2. DEPAKOTE [Suspect]
     Active Substance: DIVALPROEX SODIUM
     Indication: PRODUCT USED FOR UNKNOWN INDICATION
     Dosage: 250 MG, BID
     Route: 065
  3. TRAZODONE [Concomitant]
     Active Substance: TRAZODONE HYDROCHLORIDE
     Indication: PRODUCT USED FOR UNKNOWN INDICATION
     Dosage: UNK (AS NEEDED)
     Route: 065
  4. RISPERIDONE. [Suspect]
     Active Substance: RISPERIDONE
     Indication: PRODUCT USED FOR UNKNOWN INDICATION
     Dosage: 2 MG, UNK
     Route: 065
  5. ABILIFY [Suspect]
     Active Substance: ARIPIPRAZOLE
     Indication: SCHIZOAFFECTIVE DISORDER
     Dosage: UNK (FOR 14 DAYS)
     Route: 065
     Dates: start: 201802, end: 201802
  6. ATIVAN [Suspect]
     Active Substance: LORAZEPAM
     Dosage: 1 MG, BID (AS NEEDED)
     Route: 065
  7. ABILIFY MAINTENA [Suspect]
     Active Substance: ARIPIPRAZOLE
     Indication: SCHIZOAFFECTIVE DISORDER
     Dosage: 300 MG, QM (LOADING DOSE)
     Route: 030
     Dates: start: 20180222, end: 20180222

REACTIONS (32)
  - Screaming [Not Recovered/Not Resolved]
  - Mania [Not Recovered/Not Resolved]
  - Intentional self-injury [Unknown]
  - Drug ineffective [Unknown]
  - Verbal abuse [Recovering/Resolving]
  - Abnormal behaviour [Not Recovered/Not Resolved]
  - Impatience [Unknown]
  - Somnolence [Recovered/Resolved]
  - Prescribed underdose [Unknown]
  - Inappropriate affect [Unknown]
  - Heart rate increased [Recovered/Resolved]
  - Hostility [Recovering/Resolving]
  - Memory impairment [Not Recovered/Not Resolved]
  - Fatigue [Recovering/Resolving]
  - Sedation [Unknown]
  - Product use in unapproved indication [Unknown]
  - Derealisation [Unknown]
  - Depressed mood [Unknown]
  - Anger [Recovering/Resolving]
  - Aggression [Recovering/Resolving]
  - Psychotic disorder [Recovering/Resolving]
  - Communication disorder [Unknown]
  - Confusional state [Recovering/Resolving]
  - Chest pain [Recovered/Resolved]
  - Dyspnoea [Recovered/Resolved]
  - Agitation [Not Recovered/Not Resolved]
  - Dementia [Unknown]
  - Urinary tract infection [Not Recovered/Not Resolved]
  - Delusion [Not Recovered/Not Resolved]
  - Drug monitoring procedure incorrectly performed [Unknown]
  - Mood swings [Not Recovered/Not Resolved]
  - Affective disorder [Unknown]

NARRATIVE: CASE EVENT DATE: 2018
